FAERS Safety Report 18323056 (Version 1)
Quarter: 2020Q3

REPORT INFORMATION
  Report Type: Spontaneous
  Country: CA (occurrence: CA)
  Receive Date: 20200929
  Receipt Date: 20200929
  Transmission Date: 20201103
  Serious: Yes (Hospitalization)
  Sender: FDA-Public Use
  Company Number: CA-ACCORD-202998

PATIENT
  Age: 65 Year
  Sex: Female
  Weight: 74 kg

DRUGS (18)
  1. FLUOROURACIL. [Suspect]
     Active Substance: FLUOROURACIL
     Indication: TONGUE NEOPLASM MALIGNANT STAGE UNSPECIFIED
  2. EMEND [Concomitant]
     Active Substance: APREPITANT
  3. LORAZEPAM. [Concomitant]
     Active Substance: LORAZEPAM
  4. ROSUVASTATIN. [Concomitant]
     Active Substance: ROSUVASTATIN
  5. STATEX [Concomitant]
  6. VALSARTAN. [Concomitant]
     Active Substance: VALSARTAN
  7. PREGABALIN. [Concomitant]
     Active Substance: PREGABALIN
  8. FILGRASTIM [Concomitant]
     Active Substance: FILGRASTIM
  9. DEXAMETHASONE. [Concomitant]
     Active Substance: DEXAMETHASONE
     Route: 065
  10. PARACETAMOL [Concomitant]
     Active Substance: ACETAMINOPHEN
  11. MAGNESIUM HYDROXIDE. [Concomitant]
     Active Substance: MAGNESIUM HYDROXIDE
  12. ZYPREXA [Concomitant]
     Active Substance: OLANZAPINE
  13. CALCIUM GLUCONATE. [Concomitant]
     Active Substance: CALCIUM GLUCONATE
  14. MEROPENEM. [Concomitant]
     Active Substance: MEROPENEM
     Route: 042
  15. CISPLATIN. [Suspect]
     Active Substance: CISPLATIN
     Indication: TONGUE NEOPLASM MALIGNANT STAGE UNSPECIFIED
  16. INSULIN [Concomitant]
     Active Substance: INSULIN NOS
  17. ONDANSETRON [Concomitant]
     Active Substance: ONDANSETRON
  18. RELAXA [Concomitant]
     Route: 048

REACTIONS (2)
  - Febrile neutropenia [Recovered/Resolved]
  - Off label use [Unknown]
